FAERS Safety Report 6701708-5 (Version None)
Quarter: 2010Q2

REPORT INFORMATION
  Report Type: 
  Country: None (occurrence: None)
  Receive Date: 20100429
  Receipt Date: 20100419
  Transmission Date: 20101027
  Serious: Yes (Other)
  Sender: FDA-Public Use
  Company Number: PHHY2010FR24784

PATIENT
  Sex: Female

DRUGS (1)
  1. RASILEZ [Suspect]
     Dosage: 150 MG
     Dates: start: 20100406

REACTIONS (5)
  - ANXIETY [None]
  - ASPHYXIA [None]
  - NAUSEA [None]
  - SENSE OF OPPRESSION [None]
  - THROAT TIGHTNESS [None]
